FAERS Safety Report 4831790-1 (Version None)
Quarter: 2005Q4

REPORT INFORMATION
  Report Type: 
  Country: None (occurrence: None)
  Receive Date: 20051118
  Receipt Date: 20050310
  Transmission Date: 20060501
  Serious: Yes (Hospitalization)
  Sender: FDA-Public Use
  Company Number: US-MERCK-0503USA02283

PATIENT
  Age: 46 Year
  Sex: Female
  Weight: 84 kg

DRUGS (13)
  1. VIOXX [Suspect]
     Indication: TENDONITIS
     Route: 048
  2. DEPAKOTE [Concomitant]
     Route: 065
  3. KLONOPIN [Concomitant]
     Route: 065
  4. RISPERDAL [Concomitant]
     Route: 065
  5. BENADRYL [Concomitant]
     Route: 065
  6. DIABETA [Concomitant]
     Route: 065
  7. GLUCOPHAGE [Concomitant]
     Route: 065
  8. ZOCOR [Concomitant]
     Route: 048
     Dates: start: 20010525, end: 20040201
  9. LEVOXYL [Concomitant]
     Indication: THYROID DISORDER
     Route: 065
  10. TYLENOL (CAPLET) [Concomitant]
     Route: 065
  11. VIOXX [Suspect]
     Indication: ARTHRITIS
     Route: 048
     Dates: start: 20010525, end: 20040201
  12. VIOXX [Suspect]
     Route: 048
  13. VIOXX [Suspect]
     Route: 048
     Dates: start: 20010525, end: 20040201

REACTIONS (15)
  - ABSCESS [None]
  - ANGINA UNSTABLE [None]
  - ARTERIOSCLEROSIS [None]
  - CHOLECYSTITIS [None]
  - CONGESTIVE CARDIOMYOPATHY [None]
  - CORONARY ARTERY DISEASE [None]
  - CORONARY ARTERY STENOSIS [None]
  - DYSPNOEA [None]
  - EJECTION FRACTION DECREASED [None]
  - EMOTIONAL DISTRESS [None]
  - HEADACHE [None]
  - MYOCARDIAL INFARCTION [None]
  - NECK PAIN [None]
  - TACHYARRHYTHMIA [None]
  - VENTRICULAR TACHYCARDIA [None]
